FAERS Safety Report 25031368 (Version 1)
Quarter: 2025Q1

REPORT INFORMATION
  Report Type: Spontaneous
  Country: US (occurrence: None)
  Receive Date: 20250301
  Receipt Date: 20250301
  Transmission Date: 20250409
  Serious: Yes (Other)
  Sender: FDA-CTU
  Company Number: None

PATIENT
  Sex: Male

DRUGS (11)
  1. LENALIDOMIDE [Suspect]
     Active Substance: LENALIDOMIDE
     Indication: Plasma cell myeloma
     Dosage: FREQUENCY : DAILY;?
     Route: 048
     Dates: start: 20230926
  2. ACYCLOVIR [Concomitant]
     Active Substance: ACYCLOVIR
  3. ACYCLOVIR [Concomitant]
     Active Substance: ACYCLOVIR
  4. LENALIDOMIDE CAP 1 0MG [Concomitant]
  5. LOSARTAN POT TAB 50MG [Concomitant]
  6. MAGNESIUM TAB 250MG [Concomitant]
  7. METOPROL TAR TAB 50MG [Concomitant]
  8. OMEPRAZOLE [Concomitant]
     Active Substance: OMEPRAZOLE
  9. OZEMPIC INJ 2MG/3ML [Concomitant]
  10. SIMVASTATIN [Concomitant]
     Active Substance: SIMVASTATIN
  11. VITAMIN B12 TAB 500MCG [Concomitant]

REACTIONS (2)
  - Surgery [None]
  - Intentional dose omission [None]
